FAERS Safety Report 10952847 (Version 4)
Quarter: 2015Q2

REPORT INFORMATION
  Report Type: Spontaneous
  Country: US (occurrence: US)
  Receive Date: 20150325
  Receipt Date: 20150512
  Transmission Date: 20150821
  Serious: Yes (Other)
  Sender: FDA-Public Use
  Company Number: US-SA-2015SA036832

PATIENT
  Age: 40 Year
  Sex: Female
  Weight: 52.16 kg

DRUGS (2)
  1. LANTUS SOLOSTAR [Suspect]
     Active Substance: INSULIN GLARGINE
     Indication: DIABETES MELLITUS
     Route: 065
  2. SOLOSTAR [Suspect]
     Active Substance: DEVICE
     Indication: DIABETES MELLITUS

REACTIONS (5)
  - Malaise [Recovered/Resolved]
  - Fear [Unknown]
  - Ketoacidosis [Recovered/Resolved]
  - Blood glucose increased [Recovered/Resolved]
  - Depressed mood [Unknown]
